FAERS Safety Report 9674560 (Version 1)
Quarter: 2013Q4

REPORT INFORMATION
  Report Type: Spontaneous
  Country: US (occurrence: US)
  Receive Date: 20131107
  Receipt Date: 20131107
  Transmission Date: 20140711
  Serious: No
  Sender: FDA-Public Use
  Company Number: US-009507513-1311USA002357

PATIENT
  Sex: 0

DRUGS (3)
  1. VICTRELIS [Suspect]
     Dosage: 200 MG
     Dates: start: 20131027
  2. PEGINTERFERON ALFA-2B [Suspect]
     Dosage: UNK
     Dates: start: 20131027
  3. REBETOL [Suspect]
     Dosage: UNK
     Dates: start: 20131027

REACTIONS (2)
  - Inappropriate schedule of drug administration [Unknown]
  - No adverse event [Unknown]
